FAERS Safety Report 8069019-6 (Version None)
Quarter: 2011Q4

REPORT INFORMATION
  Report Type: 
  Country: None (occurrence: None)
  Receive Date: 20111221
  Receipt Date: 20101207
  Transmission Date: 20120403
  Serious: Yes (Death, Hospitalization, Other)
  Sender: FDA-Public Use
  Company Number: PHHY2010US65247

PATIENT
  Age: 84 Year
  Sex: Male
  Weight: 81.6 kg

DRUGS (10)
  1. BACTRIM (SULFAMETHAZOLE, TRIMETHOPRIM) TABLET [Concomitant]
  2. MEGACE  ORAL (MEGESTROL ACETATE) [Concomitant]
  3. EXJADE [Suspect]
     Indication: HAEMOCHROMATOSIS
     Dosage: 1000 MG, QD
     Dates: start: 20100501, end: 20100901
  4. EXJADE [Suspect]
     Indication: MYELODYSPLASTIC SYNDROME
     Dosage: 1000 MG, QD
     Dates: start: 20100501, end: 20100901
  5. EXJADE [Suspect]
     Indication: HAEMOCHROMATOSIS
     Dosage: 1000 MG, QD
     Dates: start: 20100707, end: 20100827
  6. EXJADE [Suspect]
     Indication: MYELODYSPLASTIC SYNDROME
     Dosage: 1000 MG, QD
     Dates: start: 20100707, end: 20100827
  7. EXJADE [Suspect]
     Indication: HAEMOCHROMATOSIS
     Dosage: 1000 MG, QD
     Dates: start: 20090615, end: 20100523
  8. EXJADE [Suspect]
     Indication: MYELODYSPLASTIC SYNDROME
     Dosage: 1000 MG, QD
     Dates: start: 20090615, end: 20100523
  9. DESFERAL [Concomitant]
  10. CIPRO [Concomitant]

REACTIONS (16)
  - NAUSEA [None]
  - PRODUCTIVE COUGH [None]
  - TRANSAMINASES INCREASED [None]
  - NEOPLASM MALIGNANT [None]
  - VOMITING [None]
  - JOINT SWELLING [None]
  - DYSPNOEA [None]
  - OEDEMA PERIPHERAL [None]
  - FATIGUE [None]
  - BACK PAIN [None]
  - WEIGHT DECREASED [None]
  - DECREASED APPETITE [None]
  - WHITE BLOOD CELL COUNT DECREASED [None]
  - HAEMOGLOBIN DECREASED [None]
  - ASTHENIA [None]
  - URINE ANALYSIS ABNORMAL [None]
